FAERS Safety Report 12137524 (Version 1)
Quarter: 2016Q1

REPORT INFORMATION
  Report Type: Spontaneous
  Country: JP (occurrence: JP)
  Receive Date: 20160302
  Receipt Date: 20160302
  Transmission Date: 20160526
  Serious: Yes (Other)
  Sender: FDA-Public Use
  Company Number: JP-009507513-1603JPN000154

PATIENT
  Age: 46 Year
  Sex: Male

DRUGS (2)
  1. REBETOL [Suspect]
     Active Substance: RIBAVIRIN
     Dosage: DAILY DOSAGE UNKNOWN
     Route: 048
  2. PEGINTRON [Suspect]
     Active Substance: PEGINTERFERON ALFA-2B
     Dosage: DAILY DOSAGE UNKNOWN
     Route: 058
     Dates: start: 201410, end: 201412

REACTIONS (3)
  - Tremor [Unknown]
  - Dementia [Unknown]
  - Confusional state [Unknown]
